FAERS Safety Report 4524030-4 (Version None)
Quarter: 2004Q4

REPORT INFORMATION
  Report Type: 
  Country: None (occurrence: None)
  Receive Date: 20041209
  Receipt Date: 20041130
  Transmission Date: 20050328
  Serious: Yes (Other)
  Sender: FDA-Public Use
  Company Number: 2004-10-1106

PATIENT
  Age: 45 Year
  Sex: Female

DRUGS (2)
  1. AERIUS (DESLORATADINE)    SYRUP [Suspect]
     Indication: PHOTOSENSITIVITY REACTION
     Dosage: 10 ML /DAY ORAL
     Route: 048
     Dates: start: 20040801, end: 20040801
  2. AERIUS (DESLORATADINE)    SYRUP [Suspect]
     Indication: URTICARIA
     Dosage: 10 ML /DAY ORAL
     Route: 048
     Dates: start: 20040801, end: 20040801

REACTIONS (2)
  - TACHYCARDIA [None]
  - VENTRICULAR EXTRASYSTOLES [None]
